FAERS Safety Report 25908582 (Version 2)
Quarter: 2025Q4

REPORT INFORMATION
  Report Type: Report from Study
  Country: US (occurrence: US)
  Receive Date: 20251010
  Receipt Date: 20251203
  Transmission Date: 20260118
  Serious: Yes (Hospitalization)
  Sender: ALEXION PHARMACEUTICALS
  Company Number: US-AstraZeneca-CH-00966342A

PATIENT
  Sex: Male

DRUGS (1)
  1. ACALABRUTINIB [Suspect]
     Active Substance: ACALABRUTINIB
     Indication: B-cell small lymphocytic lymphoma
     Dosage: 100 MILLIGRAM, BID

REACTIONS (6)
  - Dehydration [Unknown]
  - Product dose omission issue [Unknown]
  - Insomnia [Unknown]
  - Hypertension [Unknown]
  - Blood calcium increased [Unknown]
  - Renal function test abnormal [Unknown]
